FAERS Safety Report 8975034 (Version 1)
Quarter: 2012Q4

REPORT INFORMATION
  Report Type: 
  Country: US (occurrence: US)
  Receive Date: 20121219
  Receipt Date: 20121219
  Transmission Date: 20130627
  Serious: Yes (Other)
  Sender: FDA-Public Use
  Company Number: US-FRI-1000041039

PATIENT
  Sex: Female

DRUGS (1)
  1. LEXAPRO [Suspect]

REACTIONS (6)
  - Mental impairment [Unknown]
  - Suicidal ideation [Unknown]
  - Depression [Unknown]
  - Paraesthesia [Unknown]
  - Abnormal dreams [Unknown]
  - Drug effect decreased [Unknown]
